FAERS Safety Report 4813689-X (Version None)
Quarter: 2005Q4

REPORT INFORMATION
  Report Type: 
  Country: None (occurrence: None)
  Receive Date: 20051028
  Receipt Date: 20050609
  Transmission Date: 20060501
  Serious: No
  Sender: FDA-Public Use
  Company Number: US-GLAXOSMITHKLINE-A0562004A

PATIENT
  Age: 29 Year
  Sex: Female

DRUGS (8)
  1. IMITREX [Suspect]
     Indication: MIGRAINE
     Dosage: 1SPR PER DAY
     Route: 045
     Dates: start: 20041101
  2. METHADONE [Concomitant]
  3. KLONOPIN [Concomitant]
  4. DICLOFENAC SODIUM [Concomitant]
  5. NADOLOL [Concomitant]
  6. SENNA [Concomitant]
  7. PROZAC [Concomitant]
  8. ZYRTEC [Concomitant]

REACTIONS (4)
  - DRUG INEFFECTIVE [None]
  - DYSGEUSIA [None]
  - NAUSEA [None]
  - VOMITING [None]
